FAERS Safety Report 21579513 (Version 3)
Quarter: 2023Q2

REPORT INFORMATION
  Report Type: Spontaneous
  Country: US (occurrence: US)
  Receive Date: 20221110
  Receipt Date: 20230608
  Transmission Date: 20230721
  Serious: Yes (Other)
  Sender: FDA-Public Use
  Company Number: US-PFIZER INC-PV202200099789

PATIENT
  Age: 83 Year
  Sex: Female
  Weight: 99.773 kg

DRUGS (1)
  1. XELJANZ [Suspect]
     Active Substance: TOFACITINIB CITRATE
     Indication: Colitis ulcerative
     Dosage: 5 MG, 2X/DAY
     Route: 048
     Dates: start: 20201103

REACTIONS (2)
  - Diabetes mellitus [Unknown]
  - Biopsy thyroid gland [Unknown]
